FAERS Safety Report 20673676 (Version 2)
Quarter: 2022Q2

REPORT INFORMATION
  Report Type: Spontaneous
  Country: US (occurrence: None)
  Receive Date: 20220405
  Receipt Date: 20220503
  Transmission Date: 20220720
  Serious: No
  Sender: FDA-Public Use
  Company Number: 2022A108318

PATIENT
  Age: 862 Month
  Sex: Male
  Weight: 76.7 kg

DRUGS (1)
  1. BUDESONIDE\FORMOTEROL\GLYCOPYRRONIUM [Suspect]
     Active Substance: BUDESONIDE\FORMOTEROL\GLYCOPYRRONIUM
     Indication: Chronic obstructive pulmonary disease
     Dosage: 160MCG/9MCG/4.8MCG BREZTRI 2 PUFFS TWICE DAILY
     Route: 055

REACTIONS (6)
  - Fall [Unknown]
  - Back injury [Unknown]
  - Back disorder [Unknown]
  - Dyspnoea [Unknown]
  - Device malfunction [Unknown]
  - Drug delivery system issue [Unknown]

NARRATIVE: CASE EVENT DATE: 20220201
